FAERS Safety Report 4816757-1 (Version None)
Quarter: 2005Q4

REPORT INFORMATION
  Report Type: 
  Country: None (occurrence: None)
  Receive Date: 20051101
  Receipt Date: 20051020
  Transmission Date: 20060501
  Serious: Yes (Hospitalization)
  Sender: FDA-Public Use
  Company Number: US-BRISTOL-MYERS SQUIBB COMPANY-13151550

PATIENT
  Age: 47 Year
  Sex: Female
  Weight: 71 kg

DRUGS (1)
  1. AMOXICILLIN [Suspect]
     Indication: VIRAL INFECTION
     Dosage: THERAPY: SOMETIME IN THE 1980'S
     Route: 048

REACTIONS (1)
  - GASTRIC ULCER [None]
